FAERS Safety Report 7497068-5 (Version None)
Quarter: 2011Q2

REPORT INFORMATION
  Report Type: 
  Country: None (occurrence: None)
  Receive Date: 20110523
  Receipt Date: 20110513
  Transmission Date: 20111010
  Serious: Yes (Hospitalization)
  Sender: FDA-Public Use
  Company Number: US-ASTRAZENECA-2011SE28651

PATIENT
  Age: 5 Year
  Sex: Male
  Weight: 48.5 kg

DRUGS (1)
  1. PROPOFOL [Suspect]
     Indication: SEDATION

REACTIONS (2)
  - ASPIRATION [None]
  - HYPERSENSITIVITY [None]
